FAERS Safety Report 4986150-X (Version None)
Quarter: 2006Q2

REPORT INFORMATION
  Report Type: 
  Country: None (occurrence: None)
  Receive Date: 20060428
  Receipt Date: 20050606
  Transmission Date: 20061013
  Serious: Yes (Hospitalization, Disabling)
  Sender: FDA-Public Use
  Company Number: US-MERCK-0506USA01036

PATIENT
  Age: 58 Year
  Sex: Female
  Weight: 75 kg

DRUGS (9)
  1. POTASSIUM CHLORIDE [Concomitant]
     Route: 048
     Dates: start: 20020204, end: 20050513
  2. HUMIBID [Concomitant]
     Route: 048
     Dates: start: 20031209, end: 20050222
  3. VIOXX [Suspect]
     Indication: FIBROMYALGIA
     Route: 048
     Dates: start: 20000712, end: 20020705
  4. VIOXX [Suspect]
     Indication: ARTHRALGIA
     Route: 048
     Dates: start: 20000712, end: 20020705
  5. POTASSIUM CHLORIDE [Concomitant]
     Route: 048
     Dates: start: 19990104, end: 20021010
  6. FUROSEMIDE [Concomitant]
     Route: 048
     Dates: start: 19990104, end: 20050513
  7. VENTOLIN [Concomitant]
     Route: 055
     Dates: start: 19990209, end: 20030801
  8. VANCERIL [Concomitant]
     Route: 055
     Dates: start: 19990228, end: 20020907
  9. K-DUR 10 [Concomitant]
     Route: 048
     Dates: start: 20020415

REACTIONS (7)
  - CARDIAC FAILURE CONGESTIVE [None]
  - CAROTID ARTERY STENOSIS [None]
  - CEREBROVASCULAR ACCIDENT [None]
  - CHRONIC OBSTRUCTIVE PULMONARY DISEASE [None]
  - FIBROMYALGIA [None]
  - HYPERTENSIVE HEART DISEASE [None]
  - OPEN WOUND [None]
